FAERS Safety Report 5651876-1 (Version None)
Quarter: 2008Q1

REPORT INFORMATION
  Report Type: 
  Country: None (occurrence: None)
  Receive Date: 20080305
  Receipt Date: 20080222
  Transmission Date: 20080703
  Serious: Yes (Other)
  Sender: FDA-Public Use
  Company Number: JP-PFIZER INC-2008016611

PATIENT
  Sex: Female

DRUGS (4)
  1. ZOLOFT [Suspect]
     Indication: DEPRESSION
     Dosage: DAILY DOSE:50MG
     Route: 048
  2. PEROSPIRONE HYDROCHLORIDE [Concomitant]
     Route: 048
  3. ZONISAMIDE [Concomitant]
     Route: 048
  4. TOPIRAMATE [Concomitant]
     Route: 048

REACTIONS (3)
  - ACTIVATION SYNDROME [None]
  - DELIRIUM [None]
  - SELF INJURIOUS BEHAVIOUR [None]
